FAERS Safety Report 20674520 (Version 1)
Quarter: 2022Q2

REPORT INFORMATION
  Report Type: Spontaneous
  Country: US (occurrence: None)
  Receive Date: 20220404
  Receipt Date: 20220404
  Transmission Date: 20220721
  Serious: Yes (Hospitalization)
  Sender: FDA-Public Use
  Company Number: None

PATIENT
  Age: 32 Year
  Sex: Female
  Weight: 86.18 kg

DRUGS (1)
  1. ROMOSOZUMAB [Suspect]
     Active Substance: ROMOSOZUMAB

REACTIONS (3)
  - Muscle spasticity [None]
  - Urinary tract infection [None]
  - Vesicoureteric reflux [None]

NARRATIVE: CASE EVENT DATE: 20220306
